FAERS Safety Report 9784724 (Version 2)
Quarter: 2014Q1

REPORT INFORMATION
  Report Type: Report from Study
  Country: DE (occurrence: DE)
  Receive Date: 20131227
  Receipt Date: 20140129
  Transmission Date: 20141002
  Serious: Yes (Hospitalization)
  Sender: FDA-Public Use
  Company Number: DE-ROCHE-1326067

PATIENT
  Sex: Female

DRUGS (4)
  1. RANIBIZUMAB [Suspect]
     Indication: AGE-RELATED MACULAR DEGENERATION
     Route: 050
     Dates: start: 20120321
  2. RANIBIZUMAB [Suspect]
     Indication: RETINAL DETACHMENT
  3. RANIBIZUMAB [Suspect]
     Indication: CHOROIDAL NEOVASCULARISATION
  4. RANIBIZUMAB [Suspect]
     Indication: ANGIOGRAM ABNORMAL

REACTIONS (1)
  - Cerebrovascular accident [Unknown]
